FAERS Safety Report 11639401 (Version 1)
Quarter: 2015Q4

REPORT INFORMATION
  Report Type: Spontaneous
  Country: FR (occurrence: FR)
  Receive Date: 20151019
  Receipt Date: 20151019
  Transmission Date: 20160304
  Serious: Yes (Death, Hospitalization, Other)
  Sender: FDA-Public Use
  Company Number: FR-ACTELION-A-CH2015-125717

PATIENT
  Age: 85 Year
  Sex: Male

DRUGS (11)
  1. PREVISCAN [Concomitant]
     Active Substance: FLUINDIONE
  2. ALDACTONE [Concomitant]
     Active Substance: SPIRONOLACTONE
  3. XATRAL [Concomitant]
     Active Substance: ALFUZOSIN
  4. LASILIX [Concomitant]
     Active Substance: FUROSEMIDE
  5. TRACLEER [Suspect]
     Active Substance: BOSENTAN
     Indication: PULMONARY ARTERIAL HYPERTENSION
     Dosage: 125 MG, BID
     Route: 048
     Dates: start: 20141119, end: 201506
  6. SERETIDE [Concomitant]
     Active Substance: FLUTICASONE FUROATE\SALMETEROL XINAFOATE
  7. TEMESTA [Concomitant]
     Active Substance: LORAZEPAM
  8. VENTAVIS [Suspect]
     Active Substance: ILOPROST
     Indication: PULMONARY ARTERIAL HYPERTENSION
     Dosage: 10 ?G/ML, UNK
     Route: 055
     Dates: start: 201501, end: 201506
  9. DIFFU-K [Concomitant]
     Active Substance: POTASSIUM CHLORIDE
  10. OXEOL [Concomitant]
  11. SPIRIVA [Concomitant]
     Active Substance: TIOTROPIUM BROMIDE MONOHYDRATE

REACTIONS (4)
  - Coma [Fatal]
  - Ischaemic stroke [Not Recovered/Not Resolved]
  - General physical health deterioration [Fatal]
  - Multi-organ failure [Fatal]

NARRATIVE: CASE EVENT DATE: 20150630
